FAERS Safety Report 6297493-4 (Version None)
Quarter: 2009Q3

REPORT INFORMATION
  Report Type: 
  Country: None (occurrence: None)
  Receive Date: 20090805
  Receipt Date: 20090729
  Transmission Date: 20100115
  Serious: Yes (Disabling)
  Sender: FDA-Public Use
  Company Number: NL-AMGEN-US353808

PATIENT
  Age: 58 Year
  Sex: Female
  Weight: 70 kg

DRUGS (2)
  1. ENBREL [Suspect]
     Indication: RHEUMATOID ARTHRITIS
     Dosage: LYO: 25 MG TWICE A WEEK
     Route: 058
     Dates: start: 20010830, end: 20050101
  2. ENBREL [Suspect]
     Dosage: PFS: 50 MG ONCE A WEEK
     Route: 058
     Dates: start: 20050901, end: 20090622

REACTIONS (3)
  - AMNESIA [None]
  - DEMENTIA [None]
  - INJECTION SITE PAIN [None]
